FAERS Safety Report 23235639 (Version 2)
Quarter: 2023Q4

REPORT INFORMATION
  Report Type: Spontaneous
  Country: US (occurrence: US)
  Receive Date: 20231128
  Receipt Date: 20231129
  Transmission Date: 20240110
  Serious: No
  Sender: FDA-Public Use
  Company Number: US-PFIZER INC-PV202300188828

PATIENT
  Age: 12 Year
  Sex: Male

DRUGS (2)
  1. LITFULO [Interacting]
     Active Substance: RITLECITINIB TOSYLATE
     Dosage: 50 MG
  2. CIBINQO [Interacting]
     Active Substance: ABROCITINIB
     Dosage: 50 MG

REACTIONS (2)
  - Product prescribing error [Unknown]
  - Drug interaction [Unknown]
